FAERS Safety Report 6851143-4 (Version None)
Quarter: 2010Q3

REPORT INFORMATION
  Report Type: 
  Country: None (occurrence: None)
  Receive Date: 20100716
  Receipt Date: 20080401
  Transmission Date: 20110219
  Serious: No
  Sender: FDA-Public Use
  Company Number: US-PFIZER INC-2007091029

PATIENT
  Sex: Female
  Weight: 79.545 kg

DRUGS (16)
  1. CHANTIX [Suspect]
     Indication: SMOKING CESSATION THERAPY
     Route: 048
     Dates: start: 20070101, end: 20070101
  2. REQUIP [Concomitant]
  3. MUCINEX [Concomitant]
  4. FOSAMAX [Concomitant]
  5. KLOR-CON [Concomitant]
  6. PREMARIN [Concomitant]
  7. TRAZODONE HYDROCHLORIDE [Concomitant]
  8. CLONAZEPAM [Concomitant]
  9. OMEPRAZOLE [Concomitant]
  10. MIRALAX [Concomitant]
  11. HYDROCHLOROTHIAZIDE [Concomitant]
  12. ACETYLSALICYLIC ACID [Concomitant]
  13. XANAX [Concomitant]
  14. DIFLUCAN [Concomitant]
  15. ALL OTHER THERAPEUTIC PRODUCTS [Concomitant]
  16. ASTELIN [Concomitant]

REACTIONS (7)
  - CONSTIPATION [None]
  - DYSPEPSIA [None]
  - FLATULENCE [None]
  - INCORRECT DOSE ADMINISTERED [None]
  - MALAISE [None]
  - NAUSEA [None]
  - SOMNOLENCE [None]
